FAERS Safety Report 5475070-2 (Version None)
Quarter: 2007Q4

REPORT INFORMATION
  Report Type: 
  Country: None (occurrence: None)
  Receive Date: 20071002
  Receipt Date: 20070920
  Transmission Date: 20080405
  Serious: Yes (Other)
  Sender: FDA-Public Use
  Company Number: US-PFIZER INC-2007080759

PATIENT
  Sex: Female
  Weight: 54.4 kg

DRUGS (4)
  1. CHANTIX [Suspect]
     Indication: EX-SMOKER
  2. XELODA [Concomitant]
  3. AMILORIDE HYDROCHLORIDE [Concomitant]
  4. MIRTAZAPINE [Concomitant]

REACTIONS (7)
  - ABNORMAL DREAMS [None]
  - EMPHYSEMA [None]
  - MALAISE [None]
  - NAUSEA [None]
  - SKIN EXFOLIATION [None]
  - SMOKER [None]
  - VOMITING [None]
